FAERS Safety Report 8535467-0 (Version None)
Quarter: 2012Q3

REPORT INFORMATION
  Report Type: 
  Country: None (occurrence: None)
  Receive Date: 20120718
  Receipt Date: 20120718
  Transmission Date: 20120928
  Serious: Yes (Life-Threatening)
  Sender: FDA-Public Use
  Company Number: None

PATIENT
  Sex: Female

DRUGS (1)
  1. HUMULIN R [Suspect]
     Indication: DIABETES MELLITUS
     Dosage: 9 UNITS 3 TIMES DAILY SUBCU
     Route: 058
     Dates: start: 20090501, end: 20120101

REACTIONS (7)
  - WEIGHT INCREASED [None]
  - FLUID RETENTION [None]
  - FAT REDISTRIBUTION [None]
  - SWOLLEN TONGUE [None]
  - DRUG HYPERSENSITIVITY [None]
  - GAIT DISTURBANCE [None]
  - PULMONARY OEDEMA [None]
